FAERS Safety Report 4690749-8 (Version None)
Quarter: 2005Q2

REPORT INFORMATION
  Report Type: 
  Country: None (occurrence: None)
  Receive Date: 20050615
  Receipt Date: 20050608
  Transmission Date: 20051028
  Serious: Yes (Death)
  Sender: FDA-Public Use
  Company Number: JP-BRISTOL-MYERS SQUIBB COMPANY-12999447

PATIENT
  Sex: Male

DRUGS (2)
  1. BRIPLATIN [Suspect]
     Indication: GASTRIC CANCER
     Route: 042
  2. IRINOTECAN HCL [Suspect]
     Indication: GASTRIC CANCER
     Route: 042

REACTIONS (1)
  - PANCYTOPENIA [None]
